FAERS Safety Report 5416642-0 (Version None)
Quarter: 2007Q3

REPORT INFORMATION
  Report Type: 
  Country: None (occurrence: None)
  Receive Date: 20070814
  Receipt Date: 20070730
  Transmission Date: 20080115
  Serious: Yes (Hospitalization)
  Sender: FDA-Public Use
  Company Number: 2007BM000098

PATIENT
  Age: 26 Year
  Sex: Female

DRUGS (4)
  1. PREDNISOLONE [Suspect]
     Indication: PROPHYLAXIS
  2. TACROLIMUS [Suspect]
  3. ORAPRED [Suspect]
  4. VALGANCICLOVIR HCL [Concomitant]

REACTIONS (15)
  - ALPHA HAEMOLYTIC STREPTOCOCCAL INFECTION [None]
  - BLOOD CULTURE POSITIVE [None]
  - BRONCHOALVEOLAR LAVAGE ABNORMAL [None]
  - CANDIDIASIS [None]
  - CARDIAC VALVE VEGETATION [None]
  - ENDOCARDITIS [None]
  - INTRACARDIAC MASS [None]
  - LEUKOPENIA [None]
  - LUNG INFILTRATION [None]
  - ORAL CANDIDIASIS [None]
  - PORTAL VEIN STENOSIS [None]
  - PULMONARY EMBOLISM [None]
  - PULMONARY HYPERTENSION [None]
  - PYREXIA [None]
  - SYSTEMIC MYCOSIS [None]
